FAERS Safety Report 16845382 (Version 3)
Quarter: 2023Q2

REPORT INFORMATION
  Report Type: Spontaneous
  Country: US (occurrence: US)
  Receive Date: 20190924
  Receipt Date: 20230413
  Transmission Date: 20230721
  Serious: Yes (Other)
  Sender: FDA-Public Use
  Company Number: US-GILEAD-2019-0429703

PATIENT
  Age: 51 Year
  Sex: Male
  Weight: 84.807 kg

DRUGS (40)
  1. VIREAD [Suspect]
     Active Substance: TENOFOVIR DISOPROXIL FUMARATE
     Indication: HIV infection
     Dosage: UNK
     Route: 048
     Dates: start: 2002
  2. VIREAD [Suspect]
     Active Substance: TENOFOVIR DISOPROXIL FUMARATE
     Dosage: UNK
     Route: 065
     Dates: start: 2007, end: 20181002
  3. TRUVADA [Suspect]
     Active Substance: EMTRICITABINE\TENOFOVIR DISOPROXIL FUMARATE
     Indication: HIV infection
     Dosage: UNK
     Route: 048
     Dates: start: 2002
  4. TRUVADA [Suspect]
     Active Substance: EMTRICITABINE\TENOFOVIR DISOPROXIL FUMARATE
     Dosage: UNK
     Route: 065
     Dates: start: 2007, end: 20181002
  5. TRUVADA [Suspect]
     Active Substance: EMTRICITABINE\TENOFOVIR DISOPROXIL FUMARATE
     Dosage: UNK
     Route: 048
     Dates: start: 201411, end: 201801
  6. COMBIVIR [Concomitant]
     Active Substance: LAMIVUDINE\ZIDOVUDINE
  7. DESCOVY [Concomitant]
     Active Substance: EMTRICITABINE\TENOFOVIR ALAFENAMIDE FUMARATE
  8. EDURANT [Concomitant]
     Active Substance: RILPIVIRINE HYDROCHLORIDE
  9. EPIVIR [Concomitant]
     Active Substance: LAMIVUDINE
  10. INVIRASE [Concomitant]
     Active Substance: SAQUINAVIR MESYLATE
  11. KALETRA [Concomitant]
     Active Substance: LOPINAVIR\RITONAVIR
  12. NORVIR [Concomitant]
     Active Substance: RITONAVIR
  13. PREZISTA [Concomitant]
     Active Substance: DARUNAVIR ETHANOLATE
  14. RETROVIR [Concomitant]
     Active Substance: ZIDOVUDINE
  15. SUSTIVA [Concomitant]
     Active Substance: EFAVIRENZ
  16. TIVICAY [Concomitant]
     Active Substance: DOLUTEGRAVIR SODIUM
  17. VIDEX [Concomitant]
     Active Substance: DIDANOSINE
  18. VIRACEPT [Concomitant]
     Active Substance: NELFINAVIR MESYLATE
  19. IBUPROFEN [Concomitant]
     Active Substance: IBUPROFEN
  20. ZIDOVUDINE [Concomitant]
     Active Substance: ZIDOVUDINE
  21. DARUNAVIR [Concomitant]
     Active Substance: DARUNAVIR
  22. ACETAMINOPHEN [Concomitant]
     Active Substance: ACETAMINOPHEN
  23. ACETAMINOPHEN\HYDROCODONE BITARTRATE [Concomitant]
     Active Substance: ACETAMINOPHEN\HYDROCODONE BITARTRATE
  24. ADVAIR HFA [Concomitant]
     Active Substance: FLUTICASONE PROPIONATE\SALMETEROL XINAFOATE
  25. AMITRIPTYLINE [Concomitant]
     Active Substance: AMITRIPTYLINE
  26. AMLODIPINE [Concomitant]
     Active Substance: AMLODIPINE BESYLATE
  27. CHLORTHALIDONE [Concomitant]
     Active Substance: CHLORTHALIDONE
  28. DIPHENHYDRAMINE [Concomitant]
     Active Substance: DIPHENHYDRAMINE
  29. EQUATE IBUPROFEN [Concomitant]
     Active Substance: IBUPROFEN
  30. FAMOTIDINE [Concomitant]
     Active Substance: FAMOTIDINE
  31. GABAPENTIN [Concomitant]
     Active Substance: GABAPENTIN
  32. HYDROCHLOROTHIAZIDE [Concomitant]
     Active Substance: HYDROCHLOROTHIAZIDE
  33. METHYLPREDNISOLONE [Concomitant]
     Active Substance: METHYLPREDNISOLONE
  34. METOPROLOL TARTRATE [Concomitant]
     Active Substance: METOPROLOL TARTRATE
  35. NEXIUM I.V. [Concomitant]
     Active Substance: ESOMEPRAZOLE SODIUM
  36. ACETAMINOPHEN\OXYCODONE HYDROCHLORIDE\OXYCODONE TEREPHTHALATE [Concomitant]
     Active Substance: ACETAMINOPHEN\OXYCODONE HYDROCHLORIDE\OXYCODONE TEREPHTHALATE
  37. PROAIR HFA [Concomitant]
     Active Substance: ALBUTEROL SULFATE
  38. RITONAVIR [Concomitant]
     Active Substance: RITONAVIR
  39. TRAMADOL [Concomitant]
     Active Substance: TRAMADOL
  40. TYLENOL PM [Concomitant]
     Active Substance: ACETAMINOPHEN\DIPHENHYDRAMINE

REACTIONS (11)
  - Renal impairment [Not Recovered/Not Resolved]
  - Osteoporosis [Not Recovered/Not Resolved]
  - Decreased activity [Unknown]
  - Quality of life decreased [Unknown]
  - Fatigue [Not Recovered/Not Resolved]
  - Mobility decreased [Not Recovered/Not Resolved]
  - Pain [Not Recovered/Not Resolved]
  - Emotional distress [Not Recovered/Not Resolved]
  - Anxiety [Not Recovered/Not Resolved]
  - Anhedonia [Not Recovered/Not Resolved]
  - Depression [Not Recovered/Not Resolved]

NARRATIVE: CASE EVENT DATE: 20150301
